FAERS Safety Report 25496279 (Version 3)
Quarter: 2025Q3

REPORT INFORMATION
  Report Type: Spontaneous
  Country: US (occurrence: US)
  Receive Date: 20250630
  Receipt Date: 20250723
  Transmission Date: 20251021
  Serious: No
  Sender: ELI LILLY AND COMPANY
  Company Number: US-ELI_LILLY_AND_COMPANY-US202506022166

PATIENT
  Age: 64 Year
  Sex: Female
  Weight: 48.9 kg

DRUGS (16)
  1. PEMETREXED [Suspect]
     Active Substance: PEMETREXED
     Indication: Non-small cell lung cancer
     Route: 042
     Dates: start: 20250328
  2. PEMETREXED [Suspect]
     Active Substance: PEMETREXED
     Route: 042
     Dates: start: 20250424
  3. CARBOPLATIN [Suspect]
     Active Substance: CARBOPLATIN
     Indication: Non-small cell lung cancer
     Route: 042
     Dates: start: 20250328
  4. MORPHINE [Concomitant]
     Active Substance: MORPHINE
     Indication: Non-small cell lung cancer
     Dates: start: 20250306
  5. NARCAN [Concomitant]
     Active Substance: NALOXONE HYDROCHLORIDE
     Indication: Prophylaxis
  6. GLYCOLAX [Concomitant]
     Active Substance: POLYETHYLENE GLYCOL 3350
     Indication: Constipation
  7. FOLIC ACID [Concomitant]
     Active Substance: FOLIC ACID
     Indication: Prophylaxis
     Dates: start: 20250328
  8. DEXAMETHASONE [Concomitant]
     Active Substance: DEXAMETHASONE
     Indication: Prophylaxis
     Dates: start: 20250328
  9. MS CONTIN [Concomitant]
     Active Substance: MORPHINE SULFATE
     Indication: Non-small cell lung cancer
     Dates: start: 20250318, end: 20250409
  10. MS CONTIN [Concomitant]
     Active Substance: MORPHINE SULFATE
     Dates: start: 20250409
  11. PANTOPRAZOLE [Concomitant]
     Active Substance: PANTOPRAZOLE
     Indication: Prophylaxis
     Dates: start: 20250418
  12. SENNOSIDES [Concomitant]
     Active Substance: SENNOSIDES
     Indication: Constipation
  13. ZOFRAN [Concomitant]
     Active Substance: ONDANSETRON HYDROCHLORIDE
     Indication: Prophylaxis
  14. ONDANSETRON [Concomitant]
     Active Substance: ONDANSETRON
     Indication: Nausea
     Dates: start: 20250320, end: 20250414
  15. SYNTHROID [Concomitant]
     Active Substance: LEVOTHYROXINE SODIUM
     Indication: Hypothyroidism
     Dates: start: 20180524, end: 20250411
  16. MARINOL [MECOBALAMIN] [Concomitant]
     Indication: Nausea
     Dates: start: 20250415, end: 20250418

REACTIONS (1)
  - Anaemia [Not Recovered/Not Resolved]

NARRATIVE: CASE EVENT DATE: 20250415
